FAERS Safety Report 5074576-8 (Version None)
Quarter: 2006Q3

REPORT INFORMATION
  Report Type: 
  Country: None (occurrence: None)
  Receive Date: 20060808
  Receipt Date: 20050713
  Transmission Date: 20061208
  Serious: No
  Sender: FDA-Public Use
  Company Number: US-AMGEN-KDL142821

PATIENT
  Sex: Male

DRUGS (3)
  1. PROCRIT [Suspect]
     Indication: PRE-EXISTING DISEASE
  2. PEGASYS [Concomitant]
  3. RIBAVIRIN [Concomitant]

REACTIONS (1)
  - INJECTION SITE PAIN [None]
